FAERS Safety Report 7592893-4 (Version None)
Quarter: 2011Q2

REPORT INFORMATION
  Report Type: 
  Country: None (occurrence: None)
  Receive Date: 20110628
  Receipt Date: 20110616
  Transmission Date: 20111010
  Serious: Yes (Other)
  Sender: FDA-Public Use
  Company Number: GER/UKI/11/0018739

PATIENT
  Age: 78 Year
  Sex: Female

DRUGS (11)
  1. INDAPAMIDE [Concomitant]
  2. ALENDRONATE SODIUM [Concomitant]
  3. ENOXAPARIN SODIUM [Concomitant]
  4. OMEPRAZOLE [Concomitant]
  5. DONEPEZIL HCL [Suspect]
     Indication: DEMENTIA ALZHEIMER'S TYPE
     Dosage: 5 MG, 1 IN 1 D, ORAL
     Route: 048
  6. SIMVASTATIN [Concomitant]
  7. ASPIRIN [Concomitant]
  8. IRBESARTAN (IRBESARTAN [Concomitant]
  9. ADCAL-D3 (LEKOVIT CA) [Concomitant]
  10. ATENOLOL [Concomitant]
  11. LEVOTHYROXINE SODIUM [Concomitant]

REACTIONS (2)
  - ELECTROCARDIOGRAM QT PROLONGED [None]
  - BUNDLE BRANCH BLOCK LEFT [None]
